FAERS Safety Report 25308942 (Version 3)
Quarter: 2025Q2

REPORT INFORMATION
  Report Type: Spontaneous
  Country: US (occurrence: US)
  Receive Date: 20250513
  Receipt Date: 20250606
  Transmission Date: 20250716
  Serious: No
  Sender: SANOFI AVENTIS
  Company Number: US-SA-2025SA135365

PATIENT
  Age: 38 Year
  Sex: Female

DRUGS (14)
  1. DUPIXENT [Suspect]
     Active Substance: DUPILUMAB
     Indication: Dermatitis contact
     Route: 058
     Dates: start: 20250304, end: 20250304
  2. DUPIXENT [Suspect]
     Active Substance: DUPILUMAB
     Indication: Dermatitis atopic
     Dosage: 300 MG, QOW
     Route: 058
     Dates: start: 202503
  3. FAMOTIDINE [Concomitant]
     Active Substance: FAMOTIDINE
  4. MONTELUKAST [Concomitant]
     Active Substance: MONTELUKAST
  5. BIOTIN [Concomitant]
     Active Substance: BIOTIN
  6. CETIRIZINE [Concomitant]
     Active Substance: CETIRIZINE HYDROCHLORIDE
  7. PREDNISONE [Concomitant]
     Active Substance: PREDNISONE
  8. ADDERALL [Concomitant]
     Active Substance: AMPHETAMINE ASPARTATE\AMPHETAMINE SULFATE\DEXTROAMPHETAMINE SACCHARATE\DEXTROAMPHETAMINE SULFATE
  9. METHYLCOBALAMIN [Concomitant]
     Active Substance: METHYLCOBALAMIN
  10. ALLERGY RELIEF [CETIRIZINE HYDROCHLORIDE] [Concomitant]
  11. FOLTRATE [Concomitant]
     Active Substance: CYANOCOBALAMIN\FOLIC ACID
  12. EPINEPHRINE [Concomitant]
     Active Substance: EPINEPHRINE
  13. OPZELURA [Concomitant]
     Active Substance: RUXOLITINIB PHOSPHATE
  14. IRON [Concomitant]
     Active Substance: IRON

REACTIONS (3)
  - Ocular hyperaemia [Recovered/Resolved]
  - Dermatitis atopic [Unknown]
  - Product use in unapproved indication [Unknown]

NARRATIVE: CASE EVENT DATE: 20250301
